FAERS Safety Report 14543654 (Version 2)
Quarter: 2018Q1

REPORT INFORMATION
  Report Type: Spontaneous
  Country: RU (occurrence: RU)
  Receive Date: 20180216
  Receipt Date: 20180223
  Transmission Date: 20180509
  Serious: Yes (Death, Other)
  Sender: FDA-Public Use
  Company Number: RU-B.I. PHARMACEUTICALS,INC./RIDGEFIELD-2018-BI-008622

PATIENT
  Age: 72 Year
  Sex: Female
  Weight: 78 kg

DRUGS (1)
  1. PRADAXA [Suspect]
     Active Substance: DABIGATRAN ETEXILATE MESYLATE
     Indication: ATRIAL FIBRILLATION
     Route: 048
     Dates: start: 20180130, end: 20180205

REACTIONS (7)
  - Cerebral haematoma [Fatal]
  - Depressed level of consciousness [Fatal]
  - Hemiparesis [Fatal]
  - Sinusitis [Fatal]
  - Haemorrhagic stroke [Fatal]
  - Brain oedema [Fatal]
  - Brain herniation [Fatal]

NARRATIVE: CASE EVENT DATE: 20180205
